FAERS Safety Report 4380844-5 (Version None)
Quarter: 2004Q2

REPORT INFORMATION
  Report Type: 
  Country: None (occurrence: None)
  Receive Date: 20040616
  Receipt Date: 20040609
  Transmission Date: 20050107
  Serious: Yes (Other)
  Sender: FDA-Public Use
  Company Number: 2004-06-0442

PATIENT
  Age: 73 Year
  Sex: Female

DRUGS (2)
  1. AERIUS (DESLORATADINE) TABLETS    'LIKE CLARINEX' [Suspect]
     Dosage: 5 MG QD ORAL
     Route: 048
     Dates: start: 20040415, end: 20040419
  2. XYLOMETAZOLINE NASAL SOLUTION [Suspect]
     Dates: start: 20040415, end: 20040419

REACTIONS (6)
  - AGGRESSION [None]
  - AGITATION [None]
  - DEPRESSION [None]
  - EMOTIONAL DISORDER [None]
  - IRRITABILITY [None]
  - PSYCHOMOTOR HYPERACTIVITY [None]
